FAERS Safety Report 23639561 (Version 1)
Quarter: 2024Q1

REPORT INFORMATION
  Report Type: Report from Study
  Country: US (occurrence: US)
  Receive Date: 20240316
  Receipt Date: 20240316
  Transmission Date: 20240410
  Serious: Yes (Hospitalization, Other)
  Sender: FDA-Public Use
  Company Number: US-TAKEDA-US202015493

PATIENT
  Age: 61 Year
  Sex: Female

DRUGS (2)
  1. HUMAN IMMUNOGLOBULIN G [Suspect]
     Active Substance: HUMAN IMMUNOGLOBULIN G
     Indication: Immunodeficiency common variable
     Dosage: UNK
     Route: 065
  2. HUMAN IMMUNOGLOBULIN G [Suspect]
     Active Substance: HUMAN IMMUNOGLOBULIN G
     Indication: Primary immunodeficiency syndrome

REACTIONS (14)
  - Aortitis [Unknown]
  - COVID-19 pneumonia [Unknown]
  - Upper respiratory tract infection [Unknown]
  - Polycythaemia [Unknown]
  - Peripheral swelling [Unknown]
  - Gait disturbance [Unknown]
  - Total lung capacity decreased [Unknown]
  - Illness [Recovered/Resolved]
  - Arthritis [Unknown]
  - Inability to afford medication [Unknown]
  - Infusion site erythema [Unknown]
  - Multiple allergies [Unknown]
  - Dyspnoea [Unknown]
  - Myalgia [Unknown]

NARRATIVE: CASE EVENT DATE: 20200101
